FAERS Safety Report 17796379 (Version 1)
Quarter: 2020Q2

REPORT INFORMATION
  Report Type: Spontaneous
  Country: NO (occurrence: NO)
  Receive Date: 20200517
  Receipt Date: 20200517
  Transmission Date: 20200714
  Serious: Yes (Other)
  Sender: FDA-Public Use
  Company Number: NO-AMGEN-NORSP2020079365

PATIENT
  Age: 42 Year
  Sex: Female

DRUGS (2)
  1. AIMOVIG [Suspect]
     Active Substance: ERENUMAB-AOOE
     Indication: MIGRAINE
     Dosage: 70 MG, QMO
     Route: 065
     Dates: start: 20200123
  2. AIMOVIG [Suspect]
     Active Substance: ERENUMAB-AOOE
     Dosage: UNK UNK, UNK
     Route: 065

REACTIONS (13)
  - Anxiety [Recovering/Resolving]
  - Pruritus [Recovered/Resolved]
  - Suicidal ideation [Recovering/Resolving]
  - Abdominal pain [Recovered/Resolved]
  - Constipation [Recovering/Resolving]
  - Oedema [Recovering/Resolving]
  - Nausea [Recovered/Resolved]
  - Depression [Recovering/Resolving]
  - Palpitations [Recovering/Resolving]
  - Malaise [Recovered/Resolved]
  - Sleep disorder [Recovering/Resolving]
  - Fatigue [Recovering/Resolving]
  - Swelling face [Recovered/Resolved]

NARRATIVE: CASE EVENT DATE: 20200123
